FAERS Safety Report 11050461 (Version 1)
Quarter: 2015Q2

REPORT INFORMATION
  Report Type: Spontaneous
  Country: US (occurrence: None)
  Receive Date: 20150420
  Receipt Date: 20150420
  Transmission Date: 20150821
  Serious: No
  Sender: FDA-Public Use
  Company Number: None

PATIENT

DRUGS (2)
  1. CAPTOPRIL CAPTOPRIL [Suspect]
     Active Substance: CAPTOPRIL
  2. AMANTADINE HCL [Suspect]
     Active Substance: AMANTADINE HYDROCHLORIDE

REACTIONS (2)
  - Drug dispensing error [None]
  - Wrong drug administered [None]
